FAERS Safety Report 19004698 (Version 2)
Quarter: 2021Q1

REPORT INFORMATION
  Report Type: Spontaneous
  Country: ES (occurrence: ES)
  Receive Date: 20210313
  Receipt Date: 20210316
  Transmission Date: 20210420
  Serious: Yes (Life-Threatening, Hospitalization)
  Sender: FDA-Public Use
  Company Number: ES-CELLTRION INC.-2021ES003135

PATIENT

DRUGS (2)
  1. TRUXIMA [Suspect]
     Active Substance: RITUXIMAB-ABBS
     Indication: B-CELL LYMPHOMA STAGE IV
     Dosage: 100 MG
     Route: 042
     Dates: start: 20210205, end: 20210205
  2. TRUXIMA [Suspect]
     Active Substance: RITUXIMAB-ABBS
     Dosage: 750 MILLIGRAM
     Route: 042
     Dates: start: 20210304, end: 20210304

REACTIONS (2)
  - Resuscitation [Recovered/Resolved]
  - Cytokine storm [Recovered/Resolved]

NARRATIVE: CASE EVENT DATE: 20210206
